FAERS Safety Report 6029366-6 (Version None)
Quarter: 2009Q1

REPORT INFORMATION
  Report Type: 
  Country: None (occurrence: None)
  Receive Date: 20090105
  Receipt Date: 20081230
  Transmission Date: 20090719
  Serious: Yes (Other)
  Sender: FDA-Public Use
  Company Number: SP02159

PATIENT
  Age: 9 Week

DRUGS (2)
  1. COLAZAL [Suspect]
     Indication: COLITIS ULCERATIVE
     Dosage: 1.5 GRAM (1.5 GM, DAILY), TRANSMAMMARY
     Route: 063
     Dates: start: 20080101
  2. AZATHIOPRINE [Suspect]
     Indication: DRUG USE FOR UNKNOWN INDICATION
     Dosage: 75 MG (75 MG, 1 IN 1 D), TRANSMAMMARY
     Route: 063
     Dates: start: 20080101

REACTIONS (2)
  - DRUG EXPOSURE VIA BREAST MILK [None]
  - RECTAL HAEMORRHAGE [None]
